FAERS Safety Report 8909434 (Version 1)
Quarter: 2012Q4

REPORT INFORMATION
  Report Type: Spontaneous
  Country: FR (occurrence: None)
  Receive Date: 20121107
  Receipt Date: 20121107
  Transmission Date: 20130627
  Serious: Yes (Hospitalization, Other)
  Sender: FDA-Public Use
  Company Number: AUR-APL-2012-04650

PATIENT
  Age: 57 Year
  Sex: Male

DRUGS (13)
  1. RAMIPRIL (RAMIPRIL) [Suspect]
     Indication: DRUG USE FOR UNKNOWN INDICATION
     Route: 048
  2. MONO-TILDIEM [Suspect]
     Route: 048
  3. PREVISCAN [Suspect]
     Dates: end: 20120905
  4. DIGOXINE [Suspect]
     Route: 048
  5. SPIRIVA (TIOTROPIUM BROMIDE) [Concomitant]
  6. SERETIDE (SERETIDE /01420901/) [Concomitant]
  7. BRICANYL (TERBUTALINE SULFATE) [Concomitant]
  8. NASONEX (MOMETASONE FUROATE) [Concomitant]
  9. BRONCHODUAL (DUOVENT) [Concomitant]
  10. BURINEX (BUMETANIDE) [Concomitant]
  11. DIFFU K (POTASSIUM CHLORIDE) [Concomitant]
  12. NICOBION (NICOTINAMIDE) [Concomitant]
  13. OXYGEN (OXYGEN) [Concomitant]

REACTIONS (2)
  - Hyperthermia [None]
  - Autoimmune thrombocytopenia [None]
